FAERS Safety Report 5792473-7 (Version None)
Quarter: 2008Q2

REPORT INFORMATION
  Report Type: 
  Country: None (occurrence: None)
  Receive Date: 20080626
  Receipt Date: 20080618
  Transmission Date: 20081010
  Serious: Yes (Hospitalization)
  Sender: FDA-Public Use
  Company Number: DE-PFIZER INC-2007007777

PATIENT
  Sex: Female

DRUGS (14)
  1. SU-011,248 [Suspect]
     Indication: METASTATIC RENAL CELL CARCINOMA
     Route: 048
     Dates: start: 20060522, end: 20060618
  2. SU-011,248 [Suspect]
     Dosage: FREQ:CYCLIC OD: 4 WEEKS ON AND 2 WEEKS OFF
     Route: 048
  3. LORMETAZEPAM [Concomitant]
     Route: 048
     Dates: start: 20030101, end: 20060901
  4. FRAGMIN [Concomitant]
     Dates: start: 20060725, end: 20060901
  5. METOCLOPRAMIDE [Concomitant]
     Route: 048
     Dates: start: 20060310, end: 20060901
  6. NOVALGIN [Concomitant]
     Route: 048
     Dates: start: 20051130, end: 20060901
  7. LYRICA [Concomitant]
     Route: 048
     Dates: start: 20060725, end: 20060901
  8. ALL OTHER THERAPEUTIC PRODUCTS [Concomitant]
     Route: 048
     Dates: start: 20051130, end: 20060901
  9. TRAMADOL HCL [Concomitant]
     Route: 048
     Dates: start: 20050101, end: 20060725
  10. METOPROLOL [Concomitant]
     Route: 048
     Dates: start: 20030101, end: 20060901
  11. NEXIUM [Concomitant]
     Route: 048
     Dates: start: 20060725, end: 20060901
  12. IBUROFEN [Concomitant]
     Route: 048
     Dates: start: 20060725, end: 20060901
  13. MOVICOL [Concomitant]
     Route: 048
     Dates: start: 20051130, end: 20060901
  14. AMITRIPTYLINE HCL [Concomitant]
     Route: 048
     Dates: start: 20051130, end: 20060901

REACTIONS (2)
  - ANAEMIA [None]
  - ERYTHEMA [None]
